FAERS Safety Report 9253928 (Version 2)
Quarter: 2013Q2

REPORT INFORMATION
  Report Type: Report from Study
  Country: DE (occurrence: DE)
  Receive Date: 20130425
  Receipt Date: 20130627
  Transmission Date: 20140414
  Serious: Yes (Hospitalization)
  Sender: FDA-Public Use
  Company Number: DE-ABBOTT-13P-062-1078437-00

PATIENT
  Age: 62 Year
  Sex: Male
  Weight: 85 kg

DRUGS (7)
  1. HUMIRA [Suspect]
     Indication: RHEUMATOID ARTHRITIS
     Route: 058
     Dates: start: 20121210
  2. FALITHROM [Suspect]
     Indication: CORONARY ARTERY DISEASE
     Dosage: DEPENDENT ON VALUE
  3. METHOTREXATE [Concomitant]
     Indication: RHEUMATOID ARTHRITIS
  4. EXFORGE [Concomitant]
     Indication: HYPERTENSION
     Dosage: 10 MG/160 MG
  5. BISOPROLOL [Concomitant]
     Indication: HYPERTENSION
     Route: 048
  6. DIGITOXIN [Concomitant]
     Indication: CORONARY ARTERY DISEASE
  7. TORASEMID [Concomitant]
     Indication: CORONARY ARTERY DISEASE

REACTIONS (1)
  - Haematoma [Unknown]
